FAERS Safety Report 8543117-2 (Version None)
Quarter: 2012Q3

REPORT INFORMATION
  Report Type: 
  Country: None (occurrence: None)
  Receive Date: 20120727
  Receipt Date: 20111221
  Transmission Date: 20120928
  Serious: No
  Sender: FDA-Public Use
  Company Number: US-MYLANLABS-2011S1026256

PATIENT
  Age: 76 Year
  Sex: Female

DRUGS (7)
  1. BENAZEPRIL HYDROCHLORIDE [Concomitant]
  2. SINGULAIR [Concomitant]
  3. IRON [Concomitant]
  4. ADVAIR [Concomitant]
  5. SPIRIVA [Concomitant]
  6. DILTIAZEM [Concomitant]
  7. LEVOTHYROXINE SODIUM [Suspect]
     Indication: THYROID DISORDER
     Route: 048
     Dates: start: 20111001

REACTIONS (2)
  - AMNESIA [None]
  - ALOPECIA [None]
